FAERS Safety Report 9292631 (Version 1)
Quarter: 2013Q2

REPORT INFORMATION
  Report Type: Spontaneous
  Country: US (occurrence: None)
  Receive Date: 20130515
  Receipt Date: 20130515
  Transmission Date: 20140414
  Serious: No
  Sender: FDA-Public Use
  Company Number: None

PATIENT
  Age: 74 Year
  Sex: Female
  Weight: 70.31 kg

DRUGS (1)
  1. LOSARTAN [Suspect]
     Dosage: 1 A DAY MOUTH?12-12 TO 12-25-12
     Route: 048
     Dates: end: 20121225

REACTIONS (2)
  - Dizziness [None]
  - Abasia [None]
